FAERS Safety Report 18061249 (Version 1)
Quarter: 2020Q3

REPORT INFORMATION
  Report Type: Spontaneous
  Country: US (occurrence: US)
  Receive Date: 20200723
  Receipt Date: 20200723
  Transmission Date: 20201103
  Serious: No
  Sender: FDA-Public Use
  Company Number: US-GW PHARMA-202007USGW02536

PATIENT

DRUGS (1)
  1. EPIDIOLEX [Suspect]
     Active Substance: CANNABIDIOL
     Indication: SEIZURE
     Dosage: UNK TAKES WITHOUT FOOD BUT EATS 20 MINUTES AFTER THE DOSE ? HE TAKES THE EVENING DOSE AT 8PM
     Route: 048

REACTIONS (4)
  - Drooling [Unknown]
  - Dysarthria [Unknown]
  - Wrong technique in product usage process [Unknown]
  - Gait disturbance [Unknown]

NARRATIVE: CASE EVENT DATE: 2020
